FAERS Safety Report 4380654-9 (Version None)
Quarter: 2004Q2

REPORT INFORMATION
  Report Type: 
  Country: None (occurrence: None)
  Receive Date: 20040616
  Receipt Date: 20040604
  Transmission Date: 20050107
  Serious: Yes (Hospitalization, Other)
  Sender: FDA-Public Use
  Company Number: FR_021201795

PATIENT
  Age: 1 Day
  Sex: Male
  Weight: 2 kg

DRUGS (4)
  1. HUMALOG [Suspect]
     Dates: start: 20020521
  2. HUMULIN 70/30 [Suspect]
  3. VELOSULIN [Concomitant]
  4. ERYTHROCIN STEARATE [Concomitant]

REACTIONS (21)
  - ABORTION SPONTANEOUS [None]
  - APGAR SCORE LOW [None]
  - CAESAREAN SECTION [None]
  - CARDIOMEGALY [None]
  - CEREBRAL HAEMORRHAGE NEONATAL [None]
  - CEREBRAL ISCHAEMIA [None]
  - DRUG EXPOSURE DURING PREGNANCY [None]
  - FOETAL DISTRESS SYNDROME [None]
  - FOETAL MACROSOMIA [None]
  - GASTRIC HAEMORRHAGE [None]
  - GASTROOESOPHAGEAL REFLUX DISEASE [None]
  - GROWTH RETARDATION [None]
  - HYPOGLYCAEMIA NEONATAL [None]
  - JAUNDICE NEONATAL [None]
  - LEUKOPENIA NEONATAL [None]
  - MATERNAL DRUGS AFFECTING FOETUS [None]
  - NEONATAL HYPOXIA [None]
  - NEONATAL RESPIRATORY DISTRESS SYNDROME [None]
  - PREMATURE BABY [None]
  - PSYCHOMOTOR RETARDATION [None]
  - UMBILICAL CORD COMPRESSION [None]
